FAERS Safety Report 5258257-3 (Version None)
Quarter: 2007Q1

REPORT INFORMATION
  Report Type: 
  Country: None (occurrence: None)
  Receive Date: 20070302
  Receipt Date: 20070221
  Transmission Date: 20070707
  Serious: Yes (Other)
  Sender: FDA-Public Use
  Company Number: THYM-11327

PATIENT
  Age: 39 Year
  Sex: Female
  Weight: 68 kg

DRUGS (8)
  1. THYMOGLOBULIN [Suspect]
     Indication: PANCREAS TRANSPLANT REJECTION
     Dosage: 100 MG QD IV
     Route: 042
     Dates: start: 20070124, end: 20070124
  2. THYMOGLOBULIN [Suspect]
     Indication: PANCREAS TRANSPLANT REJECTION
     Dosage: 100 MG QD IV
     Route: 042
     Dates: start: 20070129, end: 20070129
  3. THYMOGLOBULIN [Suspect]
     Indication: PANCREAS TRANSPLANT REJECTION
     Dosage: 100 MG QD IV
     Route: 042
     Dates: start: 20070131, end: 20070131
  4. CELLCEPT [Concomitant]
  5. PROGRAF [Concomitant]
  6. PREDNISONE [Concomitant]
  7. TIMENTIN [Concomitant]
  8. VALCYTE [Concomitant]

REACTIONS (1)
  - SERUM SICKNESS [None]
